FAERS Safety Report 6518223-4 (Version None)
Quarter: 2009Q4

REPORT INFORMATION
  Report Type: 
  Country: None (occurrence: None)
  Receive Date: 20091224
  Receipt Date: 20091210
  Transmission Date: 20100525
  Serious: Yes (Hospitalization)
  Sender: FDA-Public Use
  Company Number: CA-GENENTECH-294114

PATIENT
  Sex: Female
  Weight: 85.5 kg

DRUGS (2)
  1. XOLAIR [Suspect]
     Indication: ASTHMA
     Dosage: 300 MG, QOW
     Route: 058
     Dates: start: 20090422
  2. XOLAIR [Suspect]

REACTIONS (2)
  - H1N1 INFLUENZA [None]
  - MALAISE [None]
